FAERS Safety Report 6685881-3 (Version None)
Quarter: 2010Q2

REPORT INFORMATION
  Report Type: 
  Country: None (occurrence: None)
  Receive Date: 20100419
  Receipt Date: 20100414
  Transmission Date: 20101027
  Serious: Yes (Hospitalization)
  Sender: FDA-Public Use
  Company Number: DE-MEDIMMUNE-MEDI-0011034

PATIENT
  Sex: Male
  Weight: 0.95 kg

DRUGS (3)
  1. SYNAGIS [Suspect]
     Dates: start: 20090901, end: 20100125
  2. VACCINATION [Concomitant]
  3. PNEUMOCOCCUS [Concomitant]

REACTIONS (7)
  - BRONCHITIS VIRAL [None]
  - CYANOSIS [None]
  - OBSTRUCTIVE AIRWAYS DISORDER [None]
  - OXYGEN SATURATION DECREASED [None]
  - PALLOR [None]
  - PHARYNGEAL ERYTHEMA [None]
  - RESPIRATORY SYNCYTIAL VIRUS INFECTION [None]
